FAERS Safety Report 4588023-3 (Version None)
Quarter: 2005Q1

REPORT INFORMATION
  Report Type: 
  Country: None (occurrence: None)
  Receive Date: 20050217
  Receipt Date: 20050209
  Transmission Date: 20050727
  Serious: Yes (Hospitalization)
  Sender: FDA-Public Use
  Company Number: 2005AL000576

PATIENT
  Age: 94 Year
  Sex: Female
  Weight: 44.4525 kg

DRUGS (11)
  1. PHENYTOIN [Suspect]
     Indication: CONVULSION
     Dosage: 5 ML; BID; PO
     Route: 048
     Dates: start: 20040906, end: 20040923
  2. CALCIUM GLUCONATE [Concomitant]
  3. LOPRESSOR [Concomitant]
  4. TORSEMIDE [Concomitant]
  5. PREVACID [Concomitant]
  6. WARFARIN SODIUM [Concomitant]
  7. LANOXIN [Concomitant]
  8. MICRO-K [Concomitant]
  9. APIRONOLACTONE [Concomitant]
  10. ATACAND [Concomitant]
  11. DOCUSATE SODIUM [Concomitant]

REACTIONS (5)
  - ANTICONVULSANT DRUG LEVEL DECREASED [None]
  - COMA [None]
  - CONVULSION [None]
  - DRUG INEFFECTIVE [None]
  - PHARMACEUTICAL PRODUCT COMPLAINT [None]
